FAERS Safety Report 7098517-7 (Version None)
Quarter: 2010Q4

REPORT INFORMATION
  Report Type: 
  Country: None (occurrence: None)
  Receive Date: 20101112
  Receipt Date: 20100408
  Transmission Date: 20110411
  Serious: No
  Sender: FDA-Public Use
  Company Number: US-KINGPHARMUSA00001-K201000419

PATIENT
  Age: 42 Year
  Sex: Female
  Weight: 58.957 kg

DRUGS (3)
  1. BICILLIN L-A [Suspect]
     Indication: LYME DISEASE
     Dosage: 1200000 IU, QW
     Route: 030
     Dates: start: 20100331
  2. OXYCODONE HCL [Concomitant]
  3. VITAMINS [Concomitant]

REACTIONS (2)
  - INJECTION SITE NODULE [None]
  - INJECTION SITE PAIN [None]
